FAERS Safety Report 9797736 (Version 1)
Quarter: 2014Q1

REPORT INFORMATION
  Report Type: Spontaneous
  Country: US (occurrence: US)
  Receive Date: 20140106
  Receipt Date: 20140106
  Transmission Date: 20141002
  Serious: No
  Sender: FDA-Public Use
  Company Number: US-PFIZER INC-2014000622

PATIENT
  Sex: Female

DRUGS (2)
  1. ACETYLSALICYLIC ACID [Suspect]
     Dosage: 650 MG, SINGLE
     Route: 048
     Dates: start: 20140101, end: 20140101
  2. ADVIL [Suspect]
     Dosage: 200 MG, SINGLE
     Route: 048
     Dates: start: 20140101, end: 20140101

REACTIONS (3)
  - Accidental exposure to product [Unknown]
  - Vomiting [Not Recovered/Not Resolved]
  - Tremor [Not Recovered/Not Resolved]
